FAERS Safety Report 16564950 (Version 2)
Quarter: 2019Q3

REPORT INFORMATION
  Report Type: Spontaneous
  Country: TH (occurrence: TH)
  Receive Date: 20190712
  Receipt Date: 20190919
  Transmission Date: 20191004
  Serious: Yes (Other)
  Sender: FDA-Public Use
  Company Number: TH-BRISTOL-MYERS SQUIBB COMPANY-BMS-2019-065891

PATIENT
  Age: 56 Year
  Sex: Male

DRUGS (1)
  1. OPDIVO [Suspect]
     Active Substance: NIVOLUMAB
     Indication: NON-SMALL CELL LUNG CANCER
     Dosage: 240 MILLIGRAM, Q2WK
     Route: 042
     Dates: start: 20190304

REACTIONS (1)
  - Optic neuritis [Unknown]
